FAERS Safety Report 4656236-8 (Version None)
Quarter: 2005Q2

REPORT INFORMATION
  Report Type: 
  Country: None (occurrence: None)
  Receive Date: 20050509
  Receipt Date: 20050308
  Transmission Date: 20051028
  Serious: No
  Sender: FDA-Public Use
  Company Number: US-GLAXOSMITHKLINE-A0548827A

PATIENT
  Age: 66 Year
  Sex: Female

DRUGS (5)
  1. AVANDAMET [Suspect]
     Route: 048
  2. GLUCOTROL XL [Concomitant]
  3. PRAVACHOL [Concomitant]
  4. LODINE XL [Concomitant]
  5. DIOVAN HCT [Concomitant]

REACTIONS (1)
  - WEIGHT INCREASED [None]
